FAERS Safety Report 9079067 (Version 1)
Quarter: 2013Q1

REPORT INFORMATION
  Report Type: Report from Study
  Country: US (occurrence: US)
  Receive Date: 20130130
  Receipt Date: 20130130
  Transmission Date: 20140127
  Serious: No
  Sender: FDA-Public Use
  Company Number: US-ABBOTT-12P-163-0967627-00

PATIENT
  Age: 19 Year
  Sex: Female

DRUGS (4)
  1. HUMIRA 40 MG/0.8 ML PEN [Suspect]
     Indication: CROHN^S DISEASE
     Dates: start: 20120806
  2. NEXIUM [Concomitant]
     Indication: CROHN^S DISEASE
     Dosage: 40MG DAILY
     Route: 048
  3. AMITIZA [Concomitant]
     Indication: CONSTIPATION
     Dosage: 8MCG CAPSULE EVERY OTHER DAY
     Route: 048
  4. MIRALAX [Concomitant]
     Indication: CONSTIPATION
     Dosage: 1 CAPSULE DAILY
     Route: 048

REACTIONS (4)
  - Ventricular extrasystoles [Not Recovered/Not Resolved]
  - Device malfunction [Unknown]
  - Incorrect dose administered [Unknown]
  - Injection site pain [Unknown]
